FAERS Safety Report 22284115 (Version 2)
Quarter: 2023Q2

REPORT INFORMATION
  Report Type: Spontaneous
  Country: CN (occurrence: CN)
  Receive Date: 20230504
  Receipt Date: 20230518
  Transmission Date: 20230721
  Serious: Yes (Other)
  Sender: FDA-Public Use
  Company Number: CN-TEVA-2023-CN-2883380

PATIENT
  Age: 20 Year
  Sex: Male

DRUGS (15)
  1. CYCLOSPORINE [Suspect]
     Active Substance: CYCLOSPORINE
     Indication: Prophylaxis against graft versus host disease
     Route: 065
     Dates: start: 2019
  2. MYCOPHENOLATE MOFETIL [Suspect]
     Active Substance: MYCOPHENOLATE MOFETIL
     Indication: Prophylaxis against graft versus host disease
     Route: 065
     Dates: start: 2019
  3. GANCICLOVIR [Suspect]
     Active Substance: GANCICLOVIR
     Indication: Cytomegalovirus infection
     Dosage: 500 MILLIGRAM DAILY;
     Route: 042
     Dates: start: 20190729
  4. GANCICLOVIR [Suspect]
     Active Substance: GANCICLOVIR
     Indication: Cytomegalovirus chorioretinitis
     Dosage: 2.5MG/0.1ML; INFUSION
     Route: 050
     Dates: start: 2019
  5. IDARUBICIN [Concomitant]
     Active Substance: IDARUBICIN
     Indication: Acute myeloid leukaemia
     Dosage: IA REGIMEN; DAY1-DAY3
     Route: 065
     Dates: start: 201902
  6. CYTARABINE [Concomitant]
     Active Substance: CYTARABINE
     Indication: Acute myeloid leukaemia
     Dosage: IA REGIMEN; DAY1-DAY7
     Route: 065
     Dates: start: 201902
  7. CYTARABINE [Concomitant]
     Active Substance: CYTARABINE
     Dosage: 2 G/M2 DAY1 -DAY5; FLAG REGIMEN
     Route: 065
     Dates: start: 20190319
  8. CYTARABINE [Concomitant]
     Active Substance: CYTARABINE
     Dosage: CONSOLIDATION CHEMOTHERAPY; 1.5 G/M2 EVERY 12 HOUR ON DAY3-DAY5
     Route: 065
     Dates: start: 2019
  9. DECITABINE [Concomitant]
     Active Substance: DECITABINE
     Indication: Acute myeloid leukaemia
     Dosage: DAY1-DAY5; CONSOLIDATION CHEMOTHERAPY
     Route: 065
     Dates: start: 2019
  10. FLUDARABINE [Concomitant]
     Active Substance: FLUDARABINE PHOSPHATE
     Indication: Acute myeloid leukaemia
     Dosage: DAY1-DAY5; FLAG REGIMEN
     Route: 065
     Dates: start: 2019
  11. FLUDARABINE [Concomitant]
     Active Substance: FLUDARABINE PHOSPHATE
     Dosage: CONSOLIDATION CHEMOTHERAPY
     Route: 065
     Dates: start: 2019
  12. BUSULFAN [Concomitant]
     Active Substance: BUSULFAN
     Indication: Acute myeloid leukaemia
     Dosage: DAY2-DAY5; CONSOLIDATION CHEMOTHERAPY
     Route: 065
     Dates: start: 2019
  13. CYCLOPHOSPHAMIDE [Concomitant]
     Active Substance: CYCLOPHOSPHAMIDE
     Indication: Acute myeloid leukaemia
     Dosage: DAY2-DAY0; CONSOLIDATION CHEMOTHERAPY
     Route: 065
     Dates: start: 2019
  14. CARMUSTINE [Concomitant]
     Active Substance: CARMUSTINE
     Indication: Acute myeloid leukaemia
     Dosage: ON DAY6; CONSOLIDATION CHEMOTHERAPY
     Route: 065
     Dates: start: 2019
  15. ACYCLOVIR [Concomitant]
     Active Substance: ACYCLOVIR
     Indication: Antiviral prophylaxis
     Dosage: .6 GRAM DAILY; EVERY 12 HOURS
     Route: 065
     Dates: start: 2019

REACTIONS (2)
  - Granulocyte count decreased [Recovered/Resolved]
  - Drug ineffective [Unknown]

NARRATIVE: CASE EVENT DATE: 20190101
